FAERS Safety Report 7620069-0 (Version None)
Quarter: 2011Q3

REPORT INFORMATION
  Report Type: 
  Country: None (occurrence: None)
  Receive Date: 20110719
  Receipt Date: 20110707
  Transmission Date: 20111222
  Serious: Yes (Other)
  Sender: FDA-Public Use
  Company Number: EE-JNJFOC-20110705813

PATIENT
  Sex: Female

DRUGS (6)
  1. NEISVAC-C [Suspect]
     Indication: PRODUCT USED FOR UNKNOWN INDICATION
     Route: 030
     Dates: start: 20110111, end: 20110111
  2. ZYRTEC [Suspect]
     Indication: HYPERSENSITIVITY
     Route: 048
  3. INFANRIX [Suspect]
     Indication: PRODUCT USED FOR UNKNOWN INDICATION
     Route: 030
     Dates: start: 20110111, end: 20110222
  4. ZYRTEC [Suspect]
     Route: 048
  5. PNEUMOCOCCAL VACCINE POLYVALENT [Suspect]
     Indication: PRODUCT USED FOR UNKNOWN INDICATION
     Route: 030
     Dates: start: 20110111, end: 20110222
  6. BACTRIM [Concomitant]
     Indication: PRODUCT USED FOR UNKNOWN INDICATION
     Route: 065

REACTIONS (3)
  - ASPARTATE AMINOTRANSFERASE INCREASED [None]
  - ALANINE AMINOTRANSFERASE INCREASED [None]
  - BLOOD ALKALINE PHOSPHATASE [None]
